APPROVED DRUG PRODUCT: LUPRON DEPOT
Active Ingredient: LEUPROLIDE ACETATE
Strength: 11.25MG
Dosage Form/Route: INJECTABLE;INJECTION
Application: N020708 | Product #001
Applicant: ABBVIE ENDOCRINE INC
Approved: Mar 7, 1997 | RLD: Yes | RS: Yes | Type: RX